FAERS Safety Report 6972221-5 (Version None)
Quarter: 2010Q3

REPORT INFORMATION
  Report Type: 
  Country: None (occurrence: None)
  Receive Date: 20100909
  Receipt Date: 20100825
  Transmission Date: 20110219
  Serious: Yes (Hospitalization, Other)
  Sender: FDA-Public Use
  Company Number: US-PAR PHARMACEUTICAL, INC-2010SCPR002035

PATIENT
  Age: 5 Week
  Sex: Female

DRUGS (4)
  1. PROPRANOLOL HYDROCHLORIDE [Suspect]
     Indication: HAEMANGIOMA
     Dosage: 1MG/KG/D
  2. PROPRANOLOL HYDROCHLORIDE [Suspect]
     Dosage: 2 MG/KG/D
     Route: 048
  3. PROPRANOLOL HYDROCHLORIDE [Suspect]
     Dosage: 1.3MG/KG/D
     Route: 048
  4. PROPRANOLOL HYDROCHLORIDE [Suspect]
     Dosage: 2 MG/KG/D
     Route: 048

REACTIONS (6)
  - GAIT DISTURBANCE [None]
  - HYPERVENTILATION [None]
  - HYPOGLYCAEMIA [None]
  - IDIOSYNCRATIC DRUG REACTION [None]
  - PALLOR [None]
  - RESPIRATORY SYNCYTIAL VIRUS INFECTION [None]
